FAERS Safety Report 21202575 (Version 1)
Quarter: 2022Q3

REPORT INFORMATION
  Report Type: Spontaneous
  Country: US (occurrence: None)
  Receive Date: 20220811
  Receipt Date: 20220811
  Transmission Date: 20221026
  Serious: Yes (Other)
  Sender: FDA-Public Use
  Company Number: None

PATIENT
  Age: 77 Year
  Sex: Male
  Weight: 92.25 kg

DRUGS (1)
  1. EMPAGLIFLOZIN [Suspect]
     Active Substance: EMPAGLIFLOZIN
     Indication: Diabetes mellitus inadequate control
     Dosage: OTHER QUANTITY : 1 TABLET(S);?
     Route: 048
     Dates: start: 20220621, end: 20220811

REACTIONS (5)
  - Glomerular filtration rate decreased [None]
  - Blood creatine increased [None]
  - Blood urea [None]
  - Weight decreased [None]
  - Renal disorder [None]

NARRATIVE: CASE EVENT DATE: 20220809
